FAERS Safety Report 9897401 (Version 1)
Quarter: 2014Q1

REPORT INFORMATION
  Report Type: Spontaneous
  Country: IT (occurrence: IT)
  Receive Date: 20140214
  Receipt Date: 20140214
  Transmission Date: 20141002
  Serious: No
  Sender: FDA-Public Use
  Company Number: IT-VERTEX PHARMACEUTICALS INC-2014-000746

PATIENT
  Age: 62 Year
  Sex: Female

DRUGS (2)
  1. INCIVO [Suspect]
     Indication: CHRONIC HEPATITIS C
     Dosage: 2250 MG, QD
     Route: 048
     Dates: start: 20131108, end: 20131113
  2. INCIVO [Suspect]
     Indication: HEPATIC CIRRHOSIS

REACTIONS (1)
  - Erythema [Recovering/Resolving]
